FAERS Safety Report 11990596 (Version 1)
Quarter: 2016Q1

REPORT INFORMATION
  Report Type: Spontaneous
  Country: US (occurrence: US)
  Receive Date: 20160202
  Receipt Date: 20160202
  Transmission Date: 20160526
  Serious: Yes (Other)
  Sender: FDA-Public Use
  Company Number: US-SA-2016SA014627

PATIENT
  Age: 75 Year
  Sex: Male

DRUGS (2)
  1. SOLOSTAR [Concomitant]
     Active Substance: DEVICE
     Indication: TYPE 2 DIABETES MELLITUS
     Dates: start: 2006
  2. LANTUS SOLOSTAR [Suspect]
     Active Substance: INSULIN GLARGINE
     Indication: TYPE 2 DIABETES MELLITUS
     Dosage: DOSE-27-30 UNITS
     Route: 065
     Dates: start: 2006

REACTIONS (3)
  - Spinal operation [Unknown]
  - Wrong technique in product usage process [Unknown]
  - Gait disturbance [Unknown]

NARRATIVE: CASE EVENT DATE: 2006
